FAERS Safety Report 19280916 (Version 1)
Quarter: 2021Q2

REPORT INFORMATION
  Report Type: Spontaneous
  Country: US (occurrence: US)
  Receive Date: 20210520
  Receipt Date: 20210520
  Transmission Date: 20210717
  Serious: No
  Sender: FDA-Public Use
  Company Number: US-REDHILL BIOPHARMA-2021RDH00021

PATIENT
  Sex: Female
  Weight: 46.26 kg

DRUGS (7)
  1. XIIDRA [Concomitant]
     Active Substance: LIFITEGRAST
  2. CELECOXIB. [Concomitant]
     Active Substance: CELECOXIB
  3. LYRICA [Concomitant]
     Active Substance: PREGABALIN
  4. GABAPENTIN. [Concomitant]
     Active Substance: GABAPENTIN
  5. TALICIA [Suspect]
     Active Substance: AMOXICILLIN\OMEPRAZOLE MAGNESIUM\RIFABUTIN
     Indication: HELICOBACTER INFECTION
  6. OMEPRAZOLE. [Concomitant]
     Active Substance: OMEPRAZOLE
  7. BUSPIRONE [Concomitant]
     Active Substance: BUSPIRONE HYDROCHLORIDE

REACTIONS (2)
  - Fatigue [Recovered/Resolved]
  - Muscle swelling [Recovered/Resolved]

NARRATIVE: CASE EVENT DATE: 202102
